FAERS Safety Report 4417282-2 (Version None)
Quarter: 2004Q3

REPORT INFORMATION
  Report Type: 
  Country: None (occurrence: None)
  Receive Date: 20040806
  Receipt Date: 20040729
  Transmission Date: 20050211
  Serious: Yes (Hospitalization)
  Sender: FDA-Public Use
  Company Number: FR-GLAXOSMITHKLINE-B0341039A

PATIENT
  Age: 75 Year
  Sex: Female

DRUGS (3)
  1. AUGMENTIN '250' [Suspect]
     Route: 050
  2. KETOPROFEN [Concomitant]
     Route: 042
     Dates: start: 20040530
  3. PERFALGAN [Concomitant]
     Route: 042
     Dates: start: 20040530

REACTIONS (4)
  - FACE OEDEMA [None]
  - LARYNGEAL PAIN [None]
  - RASH [None]
  - URTICARIA GENERALISED [None]
